FAERS Safety Report 23315818 (Version 1)
Quarter: 2023Q4

REPORT INFORMATION
  Report Type: Spontaneous
  Country: SK (occurrence: SK)
  Receive Date: 20231219
  Receipt Date: 20231219
  Transmission Date: 20240110
  Serious: Yes (Death, Life-Threatening, Hospitalization, Other)
  Sender: FDA-Public Use
  Company Number: SK-GLENMARK PHARMACEUTICALS-2021GMK053018

PATIENT
  Age: 33 Year
  Sex: Female

DRUGS (15)
  1. AZATHIOPRINE [Suspect]
     Active Substance: AZATHIOPRINE
     Indication: Colitis ulcerative
     Dosage: 25 MG, QD
     Route: 065
  2. AZATHIOPRINE [Suspect]
     Active Substance: AZATHIOPRINE
     Indication: Immunosuppressant drug therapy
     Dosage: UNK
     Route: 065
  3. CEFUROXIME [Suspect]
     Active Substance: CEFUROXIME
     Indication: Antibiotic therapy
     Dosage: UNK
     Route: 051
  4. ESTRADIOL [Suspect]
     Active Substance: ESTRADIOL
     Indication: Hormone therapy
     Dosage: 3 MG
     Route: 048
  5. ESTRADIOL [Suspect]
     Active Substance: ESTRADIOL
     Dosage: 6 MG, QD
     Route: 048
  6. FLUCONAZOLE [Suspect]
     Active Substance: FLUCONAZOLE
     Indication: Candida infection
     Dosage: 200 MG, QD
     Route: 051
  7. FLUCONAZOLE [Suspect]
     Active Substance: FLUCONAZOLE
     Indication: Antifungal treatment
     Dosage: 400 MG, QD
     Route: 051
  8. LINEZOLID [Suspect]
     Active Substance: LINEZOLID
     Indication: Antibiotic therapy
     Dosage: UNK
     Route: 065
  9. LINEZOLID [Suspect]
     Active Substance: LINEZOLID
     Indication: Infection
  10. PROGESTERONE [Suspect]
     Active Substance: PROGESTERONE
     Indication: Hormone therapy
     Dosage: 2 DF (2 DOSAGE FORM)
     Route: 067
  11. DEXAMETHASONE [Concomitant]
     Active Substance: DEXAMETHASONE
     Indication: Product used for unknown indication
     Dosage: 4 MG
     Route: 065
  12. MEROPENEM [Concomitant]
     Active Substance: MEROPENEM
     Indication: Antibiotic therapy
     Dosage: UNK
     Route: 065
  13. MESALAMINE [Concomitant]
     Active Substance: MESALAMINE
     Indication: Colitis ulcerative
     Dosage: UNK
     Route: 065
  14. MOXIFLOXACIN [Concomitant]
     Active Substance: MOXIFLOXACIN
     Indication: Antibiotic therapy
     Dosage: UNK
     Route: 065
  15. OXYGEN [Concomitant]
     Active Substance: OXYGEN
     Indication: Product used for unknown indication
     Dosage: UNK
     Route: 065

REACTIONS (52)
  - COVID-19 [Fatal]
  - Myelosuppression [Fatal]
  - Pancytopenia [Fatal]
  - Pneumonia [Fatal]
  - Multiple organ dysfunction syndrome [Fatal]
  - Coronavirus infection [Fatal]
  - Pancytopenia [Fatal]
  - Hepatic failure [Fatal]
  - Drug-induced liver injury [Fatal]
  - Drug-induced liver injury [Fatal]
  - Myelosuppression [Fatal]
  - Respiratory failure [Fatal]
  - Hepatotoxicity [Fatal]
  - Dysbiosis [Fatal]
  - Septic shock [Fatal]
  - C-reactive protein increased [Unknown]
  - Transaminases increased [Fatal]
  - Off label use [Fatal]
  - Drug ineffective [Fatal]
  - Gastrointestinal disorder [Fatal]
  - Coronavirus infection [Fatal]
  - Hypotension [Not Recovered/Not Resolved]
  - Anaemia [Not Recovered/Not Resolved]
  - Atrioventricular block second degree [Not Recovered/Not Resolved]
  - Acinetobacter infection [Not Recovered/Not Resolved]
  - Candida infection [Not Recovered/Not Resolved]
  - Thrombocytopenia [Not Recovered/Not Resolved]
  - Sinus tachycardia [Not Recovered/Not Resolved]
  - Hydrothorax [Unknown]
  - Hepatosplenomegaly [Unknown]
  - Ascites [Unknown]
  - Gastrointestinal oedema [Unknown]
  - Pleural effusion [Unknown]
  - Mediastinal effusion [Unknown]
  - Pericardial effusion [Unknown]
  - Fibrin D dimer increased [Unknown]
  - Cough [Unknown]
  - Cholestasis [Unknown]
  - Disease progression [Unknown]
  - Dyspnoea [Not Recovered/Not Resolved]
  - Atrioventricular block complete [Unknown]
  - Respiratory disorder [Unknown]
  - Cardiac disorder [Unknown]
  - Oxygen saturation decreased [Unknown]
  - Chills [Unknown]
  - Malaise [Unknown]
  - Pyrexia [Unknown]
  - Candida infection [Unknown]
  - Pyrexia [Unknown]
  - Pleural effusion [Unknown]
  - Blood bilirubin increased [Unknown]
  - Lymphopenia [Unknown]
